FAERS Safety Report 5921267-4 (Version None)
Quarter: 2008Q4

REPORT INFORMATION
  Report Type: 
  Country: None (occurrence: None)
  Receive Date: 20081014
  Receipt Date: 20080929
  Transmission Date: 20090506
  Serious: Yes (Other)
  Sender: FDA-Public Use
  Company Number: 081002-0000767

PATIENT
  Age: 4 Year
  Sex: Male

DRUGS (4)
  1. ELSPAR [Suspect]
     Indication: T-CELL TYPE ACUTE LEUKAEMIA
  2. DEXAMETHASONE TAB [Suspect]
     Indication: T-CELL TYPE ACUTE LEUKAEMIA
  3. DOXORUBICIN HCL [Suspect]
     Indication: T-CELL TYPE ACUTE LEUKAEMIA
  4. VINCRISTINE [Suspect]
     Indication: T-CELL TYPE ACUTE LEUKAEMIA

REACTIONS (4)
  - ENCEPHALOPATHY [None]
  - GAZE PALSY [None]
  - GRAND MAL CONVULSION [None]
  - MYDRIASIS [None]
